FAERS Safety Report 25650759 (Version 2)
Quarter: 2025Q3

REPORT INFORMATION
  Report Type: Spontaneous
  Country: US (occurrence: US)
  Receive Date: 20250806
  Receipt Date: 20250905
  Transmission Date: 20251021
  Serious: No
  Sender: SANOFI AVENTIS
  Company Number: US-SA-2025SA228203

PATIENT
  Age: 53 Year
  Sex: Female

DRUGS (1)
  1. DUPIXENT [Suspect]
     Active Substance: DUPILUMAB
     Indication: Asthma
     Dosage: 300 MG, QOW
     Route: 058
     Dates: start: 20250620, end: 202507

REACTIONS (5)
  - Ear infection [Unknown]
  - Arthralgia [Unknown]
  - Joint swelling [Unknown]
  - Ear pain [Unknown]
  - Sinusitis [Unknown]

NARRATIVE: CASE EVENT DATE: 20250101
